FAERS Safety Report 4665253-3 (Version None)
Quarter: 2005Q2

REPORT INFORMATION
  Report Type: 
  Country: None (occurrence: None)
  Receive Date: 20050517
  Receipt Date: 20050503
  Transmission Date: 20051028
  Serious: Yes (Hospitalization)
  Sender: FDA-Public Use
  Company Number: B0380674A

PATIENT
  Age: 42 Year
  Sex: Female

DRUGS (4)
  1. AMERGE [Suspect]
     Indication: MIGRAINE
     Dosage: 2.5 MG/AS REQUIRED
  2. PROGESTERONE [Suspect]
     Indication: MENORRHAGIA
     Dosage: 3 MG/PER DAY
  3. ETHINYL ESTRADIOL TAB [Suspect]
     Indication: MENORRHAGIA
     Dosage: .03 MG/PER DAY
  4. TOPIRAMATE [Concomitant]

REACTIONS (12)
  - ABDOMINAL PAIN LOWER [None]
  - ATROPHY [None]
  - COLITIS ISCHAEMIC [None]
  - CONDITION AGGRAVATED [None]
  - GASTROINTESTINAL NECROSIS [None]
  - HEADACHE [None]
  - LARGE INTESTINAL ULCER [None]
  - NAUSEA [None]
  - RECTAL HAEMORRHAGE [None]
  - RESPIRATORY RATE INCREASED [None]
  - VOMITING [None]
  - WHITE BLOOD CELL COUNT INCREASED [None]
